FAERS Safety Report 8965347 (Version 2)
Quarter: 2012Q4

REPORT INFORMATION
  Report Type: 
  Country: US (occurrence: US)
  Receive Date: 20121213
  Receipt Date: 20121226
  Transmission Date: 20130627
  Serious: No
  Sender: FDA-Public Use
  Company Number: US-VERTEX PHARMACEUTICALS INC.-2012-025869

PATIENT
  Sex: Male
  Weight: 94 kg

DRUGS (3)
  1. VX-950 (TELAPREVIR) [Suspect]
     Indication: HEPATITIS C
     Dosage: 750 mg, tid
     Route: 048
     Dates: start: 2012
  2. PEGASYS [Suspect]
     Indication: HEPATITIS C
     Dosage: 180 ?g, qw
     Route: 058
     Dates: start: 2012
  3. RIBAPAK [Suspect]
     Indication: HEPATITIS C
     Dosage: 600 mg, bid
     Route: 048
     Dates: start: 2012

REACTIONS (17)
  - Depression [Unknown]
  - Influenza like illness [Unknown]
  - Headache [Unknown]
  - Injection site reaction [Unknown]
  - Injection site erythema [Unknown]
  - Arthralgia [Unknown]
  - Myalgia [Unknown]
  - Back pain [Unknown]
  - Nervousness [Unknown]
  - Disturbance in attention [Unknown]
  - Decreased appetite [Unknown]
  - Chills [Unknown]
  - Constipation [Unknown]
  - Asthenia [Unknown]
  - Fatigue [Unknown]
  - Nausea [Unknown]
  - Diarrhoea [Unknown]
